FAERS Safety Report 15690347 (Version 1)
Quarter: 2018Q4

REPORT INFORMATION
  Report Type: Other
  Country: PT (occurrence: PT)
  Receive Date: 20181205
  Receipt Date: 20181205
  Transmission Date: 20190205
  Serious: Yes (Other)
  Sender: FDA-Public Use
  Company Number: PT-B. BRAUN MEDICAL INC.-2059690

PATIENT
  Age: 83 Year
  Sex: Female

DRUGS (1)
  1. HEPARIN SODIUM IN DEXTROSE [Suspect]
     Active Substance: HEPARIN SODIUM

REACTIONS (4)
  - Haemodialysis complication [None]
  - Deep vein thrombosis [None]
  - Heparin-induced thrombocytopenia [None]
  - Pulmonary embolism [None]
